FAERS Safety Report 16500020 (Version 4)
Quarter: 2019Q3

REPORT INFORMATION
  Report Type: Spontaneous
  Country: US (occurrence: US)
  Receive Date: 20190701
  Receipt Date: 20190726
  Transmission Date: 20191004
  Serious: No
  Sender: FDA-Public Use
  Company Number: US-009507513-1907USA000063

PATIENT
  Sex: Female
  Weight: 92.97 kg

DRUGS (1)
  1. NEXPLANON [Suspect]
     Active Substance: ETONOGESTREL
     Dosage: 1 IMPLANT (68 MILLIGRAM), EVERY THREE YEARS
     Route: 059
     Dates: start: 20180823, end: 20190712

REACTIONS (2)
  - Device breakage [Recovered/Resolved]
  - No adverse event [Unknown]
